FAERS Safety Report 4600014-2 (Version None)
Quarter: 2005Q1

REPORT INFORMATION
  Report Type: 
  Country: None (occurrence: None)
  Receive Date: 20050307
  Receipt Date: 20050221
  Transmission Date: 20050727
  Serious: Yes (Life-Threatening, Hospitalization, Disabling)
  Sender: FDA-Public Use
  Company Number: FR-JNJFOC-20041106062

PATIENT
  Sex: Male
  Weight: 55 kg

DRUGS (10)
  1. SPORANOX [Suspect]
     Route: 049
  2. SPORANOX [Suspect]
     Route: 049
  3. SPORANOX [Suspect]
     Route: 049
  4. PROGRAF [Interacting]
     Indication: LIVER TRANSPLANT
     Route: 049
  5. PROGRAF [Interacting]
     Indication: LUNG TRANSPLANT
     Route: 049
  6. CELLCEPT [Concomitant]
  7. CELLCEPT [Concomitant]
  8. OSTRAM [Concomitant]
  9. AXEPIM [Concomitant]
  10. TARGOCID [Concomitant]

REACTIONS (4)
  - DRUG INTERACTION [None]
  - RENAL FAILURE [None]
  - RENAL TRANSPLANT [None]
  - RENAL TUBULAR NECROSIS [None]
